FAERS Safety Report 11948089 (Version 1)
Quarter: 2016Q1

REPORT INFORMATION
  Report Type: Spontaneous
  Country: US (occurrence: US)
  Receive Date: 20160125
  Receipt Date: 20160125
  Transmission Date: 20160526
  Serious: Yes (Death, Other)
  Sender: FDA-Public Use
  Company Number: US-CELGENE-163-20785-10032332

PATIENT

DRUGS (7)
  1. THALOMID [Suspect]
     Active Substance: THALIDOMIDE
     Indication: MANTLE CELL LYMPHOMA
     Route: 048
  2. PREDNISONE. [Suspect]
     Active Substance: PREDNISONE
     Indication: MANTLE CELL LYMPHOMA
     Route: 048
  3. THALOMID [Suspect]
     Active Substance: THALIDOMIDE
     Route: 048
  4. PROCARBAZINE [Suspect]
     Active Substance: PROCARBAZINE
     Indication: MANTLE CELL LYMPHOMA
     Dosage: 50 MILLIGRAM
     Route: 065
  5. RITUXIMAB [Suspect]
     Active Substance: RITUXIMAB
     Indication: MANTLE CELL LYMPHOMA
     Route: 065
  6. CYCLOPHOSPHAMIDE. [Suspect]
     Active Substance: CYCLOPHOSPHAMIDE
     Indication: MANTLE CELL LYMPHOMA
     Dosage: 50 MILLIGRAM
     Route: 048
  7. ETOPOSIDE. [Suspect]
     Active Substance: ETOPOSIDE
     Indication: MANTLE CELL LYMPHOMA
     Dosage: 20 MILLIGRAM
     Route: 065

REACTIONS (25)
  - Pneumocystis jirovecii pneumonia [Recovered/Resolved]
  - Cytomegalovirus chorioretinitis [Recovered/Resolved]
  - Constipation [Unknown]
  - Dyspnoea [Unknown]
  - Pyrexia [Unknown]
  - Abdominal pain [Unknown]
  - Myelodysplastic syndrome [Unknown]
  - Febrile neutropenia [Unknown]
  - Fatigue [Unknown]
  - Neuropathy peripheral [Unknown]
  - Deep vein thrombosis [Unknown]
  - Pneumonia [Unknown]
  - Pulmonary embolism [Unknown]
  - Nausea [Unknown]
  - Rash [Unknown]
  - Dizziness [Unknown]
  - Infection [Unknown]
  - Death [Fatal]
  - Transient ischaemic attack [Unknown]
  - Cough [Unknown]
  - Neutropenia [Unknown]
  - Anaemia [Unknown]
  - Thrombocytopenia [Unknown]
  - Alopecia [Unknown]
  - Vomiting [Unknown]
